FAERS Safety Report 9740198 (Version 2)
Quarter: 2014Q1

REPORT INFORMATION
  Report Type: Spontaneous
  Country: US (occurrence: US)
  Receive Date: 20131209
  Receipt Date: 20140106
  Transmission Date: 20141002
  Serious: No
  Sender: FDA-Public Use
  Company Number: US-PFIZER INC-2013350730

PATIENT
  Sex: Male

DRUGS (5)
  1. LYRICA [Suspect]
     Dosage: UNK
  2. SKELAXIN [Suspect]
     Dosage: UNK
  3. LIPITOR [Suspect]
     Dosage: UNK
  4. NEURONTIN [Suspect]
     Dosage: UNK
  5. VIAGRA [Suspect]
     Dosage: UNK

REACTIONS (1)
  - Back pain [Unknown]
